FAERS Safety Report 4640988-7 (Version None)
Quarter: 2005Q2

REPORT INFORMATION
  Report Type: 
  Country: None (occurrence: None)
  Receive Date: 20050421
  Receipt Date: 20050223
  Transmission Date: 20051028
  Serious: Yes (Death, Hospitalization)
  Sender: FDA-Public Use
  Company Number: GB-BOEHRINGER INGELHEIM PHARMACEUTICALS, INC.-2005-UK-00312UK

PATIENT
  Sex: Male

DRUGS (4)
  1. SPIRIVA [Suspect]
     Route: 055
  2. SALBUTAMOL [Suspect]
  3. BECLOMETHASONE DIPROPIONATE [Suspect]
  4. QUININE SULFATE [Suspect]

REACTIONS (2)
  - CHRONIC OBSTRUCTIVE PULMONARY DISEASE [None]
  - CONDITION AGGRAVATED [None]
